FAERS Safety Report 19517692 (Version 1)
Quarter: 2021Q3

REPORT INFORMATION
  Report Type: Spontaneous
  Country: DE (occurrence: DE)
  Receive Date: 20210712
  Receipt Date: 20210712
  Transmission Date: 20211014
  Serious: Yes (Hospitalization)
  Sender: FDA-Public Use
  Company Number: DE-TEVA-2021-DE-1931126

PATIENT
  Age: 74 Year
  Sex: Male

DRUGS (4)
  1. APIXABAN [Suspect]
     Active Substance: APIXABAN
     Dosage: 10 MILLIGRAM DAILY; 1?0?1?0
     Route: 048
  2. PEMETREXED. [Suspect]
     Active Substance: PEMETREXED
     Dosage: ACCORDING TO THE SCHEME
     Route: 042
  3. ALLOPURINOL. [Concomitant]
     Active Substance: ALLOPURINOL
     Dosage: 300 MILLIGRAM DAILY; 0?1?0?0
     Route: 048
  4. FOLSAEURE [Concomitant]
     Active Substance: FOLIC ACID
     Dosage: 2 DOSAGE FORMS DAILY; 1?0?1?0
     Route: 048

REACTIONS (3)
  - Haematochezia [Unknown]
  - Dizziness [Unknown]
  - Syncope [Unknown]
